FAERS Safety Report 16902238 (Version 1)
Quarter: 2019Q4

REPORT INFORMATION
  Report Type: Spontaneous
  Country: US (occurrence: US)
  Receive Date: 20191010
  Receipt Date: 20191010
  Transmission Date: 20200122
  Serious: Yes (Life-Threatening, Other)
  Sender: FDA-Public Use
  Company Number: US-SHIRE-US201933395

PATIENT

DRUGS (5)
  1. CALCIUM [Concomitant]
     Active Substance: CALCIUM
     Indication: PRODUCT USED FOR UNKNOWN INDICATION
  2. FORTEO [Concomitant]
     Active Substance: TERIPARATIDE
     Indication: OSTEOPOROSIS
  3. CALCITRIOL. [Concomitant]
     Active Substance: CALCITRIOL
     Indication: PRODUCT USED FOR UNKNOWN INDICATION
  4. HYDROCHLOROTHIAZIDE. [Concomitant]
     Active Substance: HYDROCHLOROTHIAZIDE
     Indication: PRODUCT USED FOR UNKNOWN INDICATION
  5. NATPARA (PARATHYROID HORMONE) [Suspect]
     Active Substance: PARATHYROID HORMONE
     Indication: POST PROCEDURAL HYPOPARATHYROIDISM
     Dosage: 75 MICROGRAM, 1X/DAY:QD
     Route: 065

REACTIONS (2)
  - Recalled product [Unknown]
  - Hypocalcaemia [Unknown]
